FAERS Safety Report 19417123 (Version 1)
Quarter: 2021Q2

REPORT INFORMATION
  Report Type: Spontaneous
  Country: US (occurrence: US)
  Receive Date: 20210614
  Receipt Date: 20210614
  Transmission Date: 20210717
  Serious: No
  Sender: FDA-Public Use
  Company Number: US-JNJFOC-20210617223

PATIENT

DRUGS (2)
  1. SPRAVATO [Suspect]
     Active Substance: ESKETAMINE
     Indication: PRODUCT USED FOR UNKNOWN INDICATION
  2. KETAMINE [Concomitant]
     Active Substance: KETAMINE
     Route: 042

REACTIONS (2)
  - Off label use [Not Recovered/Not Resolved]
  - Product use issue [Unknown]
